FAERS Safety Report 9525075 (Version 1)
Quarter: 2013Q1

REPORT INFORMATION
  Report Type: Spontaneous
  Country: US (occurrence: None)
  Receive Date: 20130313
  Receipt Date: 20130313
  Transmission Date: 20140127
  Serious: No
  Sender: FDA-Public Use
  Company Number: 1000030500

PATIENT
  Age: 66 Year
  Sex: Male

DRUGS (2)
  1. SAVELLA 12.5 MG FOREST PHARMACEUTICALS [Suspect]
     Indication: FIBROMYALGIA
     Dosage: 1 IN 1 D
     Route: 048
     Dates: start: 201204, end: 201204
  2. GABAPENTIN (GABAPENTIN) [Concomitant]

REACTIONS (5)
  - Dysuria [None]
  - Genital pain [None]
  - Libido decreased [None]
  - Erectile dysfunction [None]
  - Painful ejaculation [None]
